FAERS Safety Report 4998399-0 (Version None)
Quarter: 2006Q2

REPORT INFORMATION
  Report Type: 
  Country: None (occurrence: None)
  Receive Date: 20060508
  Receipt Date: 20060428
  Transmission Date: 20061013
  Serious: Yes (Disabling)
  Sender: FDA-Public Use
  Company Number: FRP06000462

PATIENT
  Age: 86 Year
  Sex: Female

DRUGS (6)
  1. ACTONEL [Suspect]
     Indication: OSTEOPOROSIS
     Dosage: SEE IMAGE
     Route: 048
     Dates: start: 19960101, end: 20030101
  2. ACTONEL [Suspect]
     Indication: OSTEOPOROSIS
     Dosage: SEE IMAGE
     Route: 048
     Dates: start: 20030101
  3. MODURETIC ^MSD^ (AMILORIDE HYDROCHLORIDE, HYDROCHLOROTHIAZIDE) [Concomitant]
  4. POTASSIUM CHLORIDE [Concomitant]
  5. PRITOR (TELMISARTAN) [Concomitant]
  6. AMOXICILLIN [Concomitant]

REACTIONS (3)
  - BONE FISTULA [None]
  - OSTEITIS [None]
  - POST PROCEDURAL COMPLICATION [None]
